FAERS Safety Report 22052119 (Version 3)
Quarter: 2023Q1

REPORT INFORMATION
  Report Type: Report from Study
  Country: US (occurrence: None)
  Receive Date: 20230302
  Receipt Date: 20230329
  Transmission Date: 20230418
  Serious: Yes (Hospitalization)
  Sender: FDA-Public Use
  Company Number: US-ROCHE-3295305

PATIENT
  Age: 62 Year
  Sex: Male

DRUGS (9)
  1. OBINUTUZUMAB [Suspect]
     Active Substance: OBINUTUZUMAB
     Indication: Non-small cell lung cancer stage IV
     Route: 042
     Dates: start: 20230117
  2. NAPTUMOMAB ESTAFENATOX [Suspect]
     Active Substance: NAPTUMOMAB ESTAFENATOX
     Indication: Non-small cell lung cancer stage IV
     Dosage: 892 MCG ADMINISTERED IV ON DAYS 1-4 EVERY 21 DAYS.
     Route: 042
     Dates: start: 20230130
  3. DOCETAXEL [Suspect]
     Active Substance: DOCETAXEL
     Indication: Non-small cell lung cancer stage IV
     Dosage: 161 MG ADMINISTERED IV ON DAY 5 EVERY 21 DAYS.
     Route: 042
     Dates: start: 20230203
  4. ELIQUIS [Concomitant]
     Active Substance: APIXABAN
     Indication: Deep vein thrombosis
     Route: 048
     Dates: start: 202208
  5. TRELEGY ELLIPTA [Concomitant]
     Active Substance: FLUTICASONE FUROATE\UMECLIDINIUM BROMIDE\VILANTEROL TRIFENATATE
     Dosage: FLUTICASONE FUROATE 100 MCG, UMECLIDINIUM 62.5 MCG, VILANTEROL 25 MCG, INHALED DAILY
     Dates: start: 201708
  6. LEVOTHYROXINE [Concomitant]
     Active Substance: LEVOTHYROXINE
     Indication: Hypothyroidism
     Dosage: 112 MCG
     Route: 048
  7. ALBUTEROL\IPRATROPIUM [Concomitant]
     Active Substance: ALBUTEROL\IPRATROPIUM
     Dates: start: 201708
  8. MORPHINE [Concomitant]
     Active Substance: MORPHINE
     Route: 048
     Dates: start: 202201
  9. NEURONTIN [Concomitant]
     Active Substance: GABAPENTIN
     Indication: Neuropathy peripheral
     Dosage: ORALLY AT BEDTIME AS NEEDED
     Route: 048
     Dates: start: 202208

REACTIONS (2)
  - Febrile neutropenia [Recovered/Resolved]
  - Abdominal pain [Recovered/Resolved]

NARRATIVE: CASE EVENT DATE: 20230209
